FAERS Safety Report 18730173 (Version 5)
Quarter: 2021Q2

REPORT INFORMATION
  Report Type: Report from Study
  Country: CO (occurrence: CO)
  Receive Date: 20210112
  Receipt Date: 20210610
  Transmission Date: 20210717
  Serious: Yes (Other)
  Sender: FDA-Public Use
  Company Number: NVSC2021CO004706

PATIENT
  Sex: Female

DRUGS (3)
  1. TASIGNA [Suspect]
     Active Substance: NILOTINIB
     Dosage: 100 MG, QD
     Route: 048
     Dates: start: 202012
  2. TASIGNA [Suspect]
     Active Substance: NILOTINIB
     Indication: CHRONIC MYELOID LEUKAEMIA
     Dosage: 2, BID (IN THE MORNING AND AT NIGHT)
     Route: 048
  3. TASIGNA [Suspect]
     Active Substance: NILOTINIB
     Dosage: 100 MG, QD (5 YEARS AGO)
     Route: 048
     Dates: end: 202011

REACTIONS (8)
  - Product dose omission issue [Unknown]
  - Haemorrhoids [Unknown]
  - Benign ovarian tumour [Unknown]
  - Weight decreased [Unknown]
  - Laboratory test abnormal [Unknown]
  - Overweight [Unknown]
  - Incorrect dose administered [Unknown]
  - Second primary malignancy [Unknown]
